FAERS Safety Report 18474611 (Version 6)
Quarter: 2021Q4

REPORT INFORMATION
  Report Type: Spontaneous
  Country: US (occurrence: US)
  Receive Date: 20201106
  Receipt Date: 20211005
  Transmission Date: 20220303
  Serious: Yes (Disabling, Other)
  Sender: FDA-Public Use
  Company Number: US-PURDUE-USA-2020-0153843

PATIENT
  Age: 68 Year
  Sex: Female

DRUGS (11)
  1. OXYCONTIN [Suspect]
     Active Substance: OXYCODONE HYDROCHLORIDE
     Indication: Back pain
     Dosage: UNKNOWN
     Route: 048
  2. ACETAMINOPHEN\HYDROCODONE BITARTRATE [Suspect]
     Active Substance: ACETAMINOPHEN\HYDROCODONE BITARTRATE
     Indication: Pain
     Dosage: 10-325 MG, Q4H PRN
     Route: 048
     Dates: start: 200010, end: 201710
  3. OXYCODONE HYDROCHLORIDE [Suspect]
     Active Substance: OXYCODONE HYDROCHLORIDE
     Indication: Back pain
     Dosage: 5 MG, Q6H PRN
     Route: 048
     Dates: start: 201710, end: 2020
  4. OXYCODONE HYDROCHLORIDE [Suspect]
     Active Substance: OXYCODONE HYDROCHLORIDE
     Dosage: 10 MG, UNK
     Route: 048
  5. OXYCODONE HYDROCHLORIDE [Suspect]
     Active Substance: OXYCODONE HYDROCHLORIDE
     Dosage: 15 MG, Q6H PRN
     Route: 048
  6. BUTRANS [Suspect]
     Active Substance: BUPRENORPHINE
     Indication: Back pain
     Dosage: 10 MCG, 1/WEEK
     Route: 062
  7. BUPRENORPHINE [Suspect]
     Active Substance: BUPRENORPHINE
     Indication: Back pain
     Dosage: UNKNOWN
     Route: 062
  8. HYDROCODONE BITARTRATE [Suspect]
     Active Substance: HYDROCODONE BITARTRATE
     Indication: Product used for unknown indication
     Dosage: UNKNOWN
     Route: 048
  9. VICODIN [Suspect]
     Active Substance: ACETAMINOPHEN\HYDROCODONE BITARTRATE
     Indication: Product used for unknown indication
     Dosage: UNKNOWN
     Route: 065
  10. NORCO [Suspect]
     Active Substance: ACETAMINOPHEN\HYDROCODONE BITARTRATE
     Indication: Product used for unknown indication
     Dosage: UNKNOWN
     Route: 065
  11. DILAUDID [Suspect]
     Active Substance: HYDROMORPHONE HYDROCHLORIDE
     Indication: Product used for unknown indication
     Dosage: UNKNOWN
     Route: 048

REACTIONS (22)
  - Disability [Unknown]
  - Drug dependence [Unknown]
  - Hallucination [Unknown]
  - Drug ineffective [Unknown]
  - Pain [Unknown]
  - Emotional distress [Unknown]
  - Hyperhidrosis [Unknown]
  - Dizziness [Unknown]
  - Nausea [Unknown]
  - Decreased appetite [Unknown]
  - Confusional state [Unknown]
  - Heart rate irregular [Unknown]
  - Pruritus [Unknown]
  - Dysphagia [Unknown]
  - Migraine [Unknown]
  - Vision blurred [Unknown]
  - Anxiety [Unknown]
  - Weight decreased [Unknown]
  - Asthenia [Unknown]
  - Erythema [Unknown]
  - Dry skin [Unknown]
  - Feeling abnormal [Unknown]

NARRATIVE: CASE EVENT DATE: 20200101
